FAERS Safety Report 5268508-7 (Version None)
Quarter: 2007Q1

REPORT INFORMATION
  Report Type: 
  Country: None (occurrence: None)
  Receive Date: 20061213
  Receipt Date: 20040826
  Transmission Date: 20070707
  Serious: Yes (Other)
  Sender: FDA-Public Use
  Company Number: 2004UW18119

PATIENT
  Age: 72 Year
  Sex: Male
  Weight: 96.6162 kg

DRUGS (10)
  1. IRESSA [Suspect]
     Indication: NON-SMALL CELL LUNG CANCER
     Dosage: 250 MG PO
     Route: 048
     Dates: start: 20040601
  2. IMDUR [Concomitant]
  3. ZOCOR [Concomitant]
  4. OMEPRAZOLE [Concomitant]
  5. CLONAZEPAM [Concomitant]
  6. CLARITIN [Concomitant]
  7. ASPIRIN [Concomitant]
  8. NO MATCH [Concomitant]
  9. M.V.I. [Concomitant]
  10. ASCORBIC ACID [Concomitant]

REACTIONS (3)
  - DIARRHOEA [None]
  - HAIR GROWTH ABNORMAL [None]
  - RASH [None]
